FAERS Safety Report 5144255-7 (Version None)
Quarter: 2006Q4

REPORT INFORMATION
  Report Type: 
  Country: None (occurrence: None)
  Receive Date: 20061102
  Receipt Date: 20061102
  Transmission Date: 20070319
  Serious: Yes (Hospitalization)
  Sender: FDA-Public Use
  Company Number: None

PATIENT
  Sex: Male
  Weight: 76 kg

DRUGS (2)
  1. HALOPERIDOL [Suspect]
     Indication: SCHIZOPHRENIA
     Dosage: HALOPERIDOL  5MG    EVERY SIX HOURS  PO
     Route: 048
     Dates: start: 19970616, end: 20060708
  2. OLANZAPINE [Suspect]
     Dosage: OLANZAPINE 20MG   AT BEDTIME   PO
     Route: 048
     Dates: start: 19981216, end: 20060708

REACTIONS (8)
  - BLOOD CREATINE PHOSPHOKINASE INCREASED [None]
  - CONSTIPATION [None]
  - ESCHAR [None]
  - ESCHERICHIA URINARY TRACT INFECTION [None]
  - FAECAL INCONTINENCE [None]
  - MENTAL STATUS CHANGES [None]
  - PNEUMONIA [None]
  - URINARY INCONTINENCE [None]
